FAERS Safety Report 5605668-X (Version None)
Quarter: 2008Q1

REPORT INFORMATION
  Report Type: 
  Country: None (occurrence: None)
  Receive Date: 20080123
  Receipt Date: 20080123
  Transmission Date: 20080703
  Serious: Yes (Other)
  Sender: FDA-Public Use
  Company Number: None

PATIENT
  Age: 58 Year
  Sex: Female
  Weight: 94.3482 kg

DRUGS (1)
  1. LYRICA [Suspect]
     Indication: FIBROMYALGIA
     Dosage: 1 CAPSULE  3 X DAY  PO
     Route: 048
     Dates: start: 20080105, end: 20080118

REACTIONS (9)
  - AMNESIA [None]
  - ANXIETY [None]
  - DISTURBANCE IN ATTENTION [None]
  - DIZZINESS [None]
  - EUPHORIC MOOD [None]
  - IMPAIRED WORK ABILITY [None]
  - LOSS OF LIBIDO [None]
  - VISION BLURRED [None]
  - WEIGHT INCREASED [None]
